FAERS Safety Report 19508272 (Version 6)
Quarter: 2023Q2

REPORT INFORMATION
  Report Type: Spontaneous
  Country: PL (occurrence: PL)
  Receive Date: 20210708
  Receipt Date: 20230410
  Transmission Date: 20230722
  Serious: Yes (Hospitalization, Other)
  Sender: FDA-Public Use
  Company Number: PL-002147023-NVSC2021PL140813

PATIENT
  Age: 62 Year
  Sex: Male
  Weight: 98 kg

DRUGS (39)
  1. LINAGLIPTIN [Suspect]
     Active Substance: LINAGLIPTIN
     Indication: Product used for unknown indication
  2. TELMISARTAN [Suspect]
     Active Substance: TELMISARTAN
     Indication: Product used for unknown indication
     Route: 065
  3. ASPIRIN [Suspect]
     Active Substance: ASPIRIN
     Indication: Hypertension
     Route: 065
  4. ASPIRIN [Suspect]
     Active Substance: ASPIRIN
     Route: 065
  5. ESOMEPRAZOLE MAGNESIUM [Suspect]
     Active Substance: ESOMEPRAZOLE MAGNESIUM
     Indication: Antiplatelet therapy
     Dosage: 20 MG (GASTRO-RESISTANT TABLET)
  6. ESOMEPRAZOLE MAGNESIUM [Suspect]
     Active Substance: ESOMEPRAZOLE MAGNESIUM
     Indication: Renal failure
  7. ESOMEPRAZOLE SODIUM [Suspect]
     Active Substance: ESOMEPRAZOLE SODIUM
     Indication: Renal failure
     Route: 065
  8. PANTOPRAZOLE [Suspect]
     Active Substance: PANTOPRAZOLE
     Indication: Product used for unknown indication
     Route: 065
  9. PANTOPRAZOLE [Suspect]
     Active Substance: PANTOPRAZOLE
     Route: 065
  10. CARVEDILOL [Suspect]
     Active Substance: CARVEDILOL
     Indication: Product used for unknown indication
     Dosage: 12.5 MILLIGRAM, BID
     Route: 065
  11. CARVEDILOL [Suspect]
     Active Substance: CARVEDILOL
     Route: 065
  12. CARVEDILOL [Suspect]
     Active Substance: CARVEDILOL
  13. CARVEDILOL [Suspect]
     Active Substance: CARVEDILOL
  14. FLUTICASONE PROPIONATE\SALMETEROL XINAFOATE [Suspect]
     Active Substance: FLUTICASONE PROPIONATE\SALMETEROL XINAFOATE
     Indication: Product used for unknown indication
     Dosage: 2 DF (250 ?G +50 UG) INHALATION
     Route: 055
  15. FLUTICASONE PROPIONATE\SALMETEROL XINAFOATE [Suspect]
     Active Substance: FLUTICASONE PROPIONATE\SALMETEROL XINAFOATE
     Dosage: 250/50 MICROGRAM
     Route: 055
  16. FLUTICASONE PROPIONATE\SALMETEROL XINAFOATE [Suspect]
     Active Substance: FLUTICASONE PROPIONATE\SALMETEROL XINAFOATE
     Dosage: 2 DF (250 / 50 MCG)
     Route: 055
  17. FENOBIBRATE [Suspect]
     Active Substance: FENOFIBRATE
     Indication: Product used for unknown indication
     Route: 065
  18. FENOBIBRATE [Suspect]
     Active Substance: FENOFIBRATE
     Dosage: 215 MILLIGRAM, QD   (215 MG, QD (IN THE MORNING)
     Route: 065
  19. FENOBIBRATE [Suspect]
     Active Substance: FENOFIBRATE
     Dosage: 215 MG, QD (IN THE MORNING)
     Route: 065
  20. CARVEDILOL [Suspect]
     Active Substance: CARVEDILOL
     Indication: Product used for unknown indication
     Dosage: 12.5 MILLIGRAM, QD
     Route: 065
  21. CARVEDILOL [Suspect]
     Active Substance: CARVEDILOL
     Dosage: 12.5 MG, QD
  22. CARVEDILOL [Suspect]
     Active Substance: CARVEDILOL
     Dosage: 2 DF (12.5 MG), QD IN THE MORNING
     Route: 065
  23. AMLODIPINE BESYLATE [Suspect]
     Active Substance: AMLODIPINE BESYLATE
     Indication: Product used for unknown indication
     Dosage: 10 MILLIGRAM, QD
     Route: 065
  24. AMLODIPINE BESYLATE [Suspect]
     Active Substance: AMLODIPINE BESYLATE
     Dosage: 10 MILLIGRAM, QD   10 MG, QD (IN MORNING)
     Route: 065
  25. AMLODIPINE\RAMIPRIL [Suspect]
     Active Substance: AMLODIPINE\RAMIPRIL
     Indication: Cardiac failure
  26. AMLODIPINE\RAMIPRIL [Suspect]
     Active Substance: AMLODIPINE\RAMIPRIL
     Indication: Coronary artery disease
  27. ROSUVASTATIN [Suspect]
     Active Substance: ROSUVASTATIN
     Indication: Carotid arteriosclerosis
     Dosage: 10 MG, QD (IN EVENING)
     Route: 065
  28. ROSUVASTATIN [Suspect]
     Active Substance: ROSUVASTATIN
     Indication: Hypertension
  29. BISOPROLOL [Suspect]
     Active Substance: BISOPROLOL
     Indication: Coronary artery disease
  30. BISOPROLOL [Suspect]
     Active Substance: BISOPROLOL
     Indication: Cardiac failure
  31. FENOFIBRATE [Suspect]
     Active Substance: FENOFIBRATE
     Indication: Product used for unknown indication
     Dosage: 215 MG, QD (IN MORNING)
     Route: 065
  32. AMLODIPINE [Suspect]
     Active Substance: AMLODIPINE BESYLATE
     Indication: Product used for unknown indication
     Dosage: 10 MG, QD (IN MORNING)
     Route: 065
  33. METFORMIN [Suspect]
     Active Substance: METFORMIN HYDROCHLORIDE
     Indication: Product used for unknown indication
     Dosage: 2550 MG, QD
     Route: 065
  34. METFORMIN [Suspect]
     Active Substance: METFORMIN HYDROCHLORIDE
     Dosage: 850 MG, TID
  35. RAMIPRIL [Suspect]
     Active Substance: RAMIPRIL
     Indication: Cardiac failure
     Dosage: 10 MG
  36. RAMIPRIL [Suspect]
     Active Substance: RAMIPRIL
     Indication: Coronary artery disease
  37. TRIMETAZIDINE [Suspect]
     Active Substance: TRIMETAZIDINE
     Indication: Product used for unknown indication
     Dosage: 40 MG, QD
     Route: 065
  38. HYDROCHLOROTHIAZIDE [Suspect]
     Active Substance: HYDROCHLOROTHIAZIDE
     Indication: Product used for unknown indication
     Dosage: 12.5 MG, QD
  39. CLOPIDOGREL [Concomitant]
     Active Substance: CLOPIDOGREL BISULFATE
     Indication: Postoperative care

REACTIONS (63)
  - Pericardial effusion [Unknown]
  - Asthenia [Unknown]
  - Oedema peripheral [Unknown]
  - Carotid arteriosclerosis [Unknown]
  - Palpitations [Unknown]
  - Mitral valve incompetence [Unknown]
  - Left ventricular hypertrophy [Unknown]
  - Dyspnoea at rest [Unknown]
  - Carotid artery stenosis [Unknown]
  - Tricuspid valve incompetence [Unknown]
  - Systolic dysfunction [Unknown]
  - Aortic valve incompetence [Unknown]
  - Hepatojugular reflux [Unknown]
  - Aortic valve incompetence [Unknown]
  - Angiopathy [Unknown]
  - Coronary artery disease [Unknown]
  - Occult blood [Unknown]
  - Acute kidney injury [Unknown]
  - Helicobacter gastritis [Unknown]
  - Helicobacter gastritis [Unknown]
  - Chronic kidney disease [Unknown]
  - Hyperlipidaemia [Unknown]
  - Electrocardiogram Q wave abnormal [Unknown]
  - Ventricular hypokinesia [Unknown]
  - Acute myocardial infarction [Unknown]
  - Cardiac failure [Unknown]
  - Cardiac failure [Unknown]
  - Coronary artery stenosis [Unknown]
  - Syncope [Unknown]
  - Ventricular tachycardia [Unknown]
  - Intestinal obstruction [Unknown]
  - Anaemia macrocytic [Unknown]
  - Supraventricular tachycardia [Unknown]
  - Diastolic dysfunction [Unknown]
  - Fatigue [Unknown]
  - Ventricular arrhythmia [Unknown]
  - Hypotension [Unknown]
  - Electrocardiogram QT prolonged [Unknown]
  - Cardiomegaly [Unknown]
  - Supraventricular tachycardia [Unknown]
  - Ventricular tachycardia [Unknown]
  - Mitral valve incompetence [Unknown]
  - Tricuspid valve incompetence [Unknown]
  - Syncope [Unknown]
  - Rales [Unknown]
  - Rales [Unknown]
  - Left ventricular dysfunction [Unknown]
  - Pericardial disease [Unknown]
  - Ill-defined disorder [Unknown]
  - Mitral valve disease [Unknown]
  - Echocardiogram abnormal [Unknown]
  - Joint swelling [Unknown]
  - Pulmonary valve disease [Unknown]
  - Bundle branch block left [Unknown]
  - Ejection fraction decreased [Unknown]
  - Physical examination abnormal [Unknown]
  - Cardiac discomfort [Unknown]
  - Skin lesion [Unknown]
  - Anaemia macrocytic [Unknown]
  - Joint swelling [Unknown]
  - Stenosis [Unknown]
  - Rales [Unknown]
  - Cardiomegaly [Unknown]

NARRATIVE: CASE EVENT DATE: 20190918
